FAERS Safety Report 16426774 (Version 2)
Quarter: 2019Q3

REPORT INFORMATION
  Report Type: Report from Study
  Country: DE (occurrence: DE)
  Receive Date: 20190613
  Receipt Date: 20190829
  Transmission Date: 20191004
  Serious: Yes (Hospitalization)
  Sender: FDA-Public Use
  Company Number: DE-ROCHE-2279355

PATIENT
  Sex: Female

DRUGS (10)
  1. PREGABALIN. [Concomitant]
     Active Substance: PREGABALIN
  2. CALCILAC [CALCIUM CARBONATE;COLECALCIFEROL] [Concomitant]
  3. L-THYROXIN [LEVOTHYROXINE] [Concomitant]
     Active Substance: LEVOTHYROXINE SODIUM
  4. TOCILIZUMAB. [Suspect]
     Active Substance: TOCILIZUMAB
     Indication: RHEUMATOID ARTHRITIS
     Route: 058
     Dates: end: 20190411
  5. PANTOPRAZOLE [Concomitant]
     Active Substance: PANTOPRAZOLE
  6. PREDNISOLONE. [Concomitant]
     Active Substance: PREDNISOLONE
  7. FOLIC ACID. [Concomitant]
     Active Substance: FOLIC ACID
  8. ALENDRONAT [Concomitant]
     Active Substance: ALENDRONATE SODIUM
  9. METOPROLOL. [Concomitant]
     Active Substance: METOPROLOL
  10. DELIX [RAMIPRIL] [Concomitant]
     Active Substance: RAMIPRIL

REACTIONS (5)
  - Dermal cyst [Not Recovered/Not Resolved]
  - Pain [Not Recovered/Not Resolved]
  - Diverticulitis [Recovered/Resolved]
  - Peritonitis [Recovered/Resolved]
  - Cholecystitis [Recovered/Resolved]

NARRATIVE: CASE EVENT DATE: 20190319
